FAERS Safety Report 11714057 (Version 2)
Quarter: 2016Q1

REPORT INFORMATION
  Report Type: Spontaneous
  Country: US (occurrence: US)
  Receive Date: 20151109
  Receipt Date: 20160201
  Transmission Date: 20160525
  Serious: No
  Sender: FDA-Public Use
  Company Number: US-PFIZER INC-2015354971

PATIENT
  Age: 22 Year
  Sex: Female
  Weight: 67 kg

DRUGS (5)
  1. ALAVERT ALLERGY [Suspect]
     Active Substance: LORATADINE
     Indication: SNEEZING
  2. ALAVERT ALLERGY [Suspect]
     Active Substance: LORATADINE
     Indication: NASAL CONGESTION
  3. ALAVERT ALLERGY [Suspect]
     Active Substance: LORATADINE
     Indication: RHINORRHOEA
     Dosage: UNK UNK, 1X/DAY
  4. ALAVERT ALLERGY [Suspect]
     Active Substance: LORATADINE
     Indication: LACRIMATION INCREASED
     Dosage: 5 MG, (ONCE EVERY 12 HOURS)
     Dates: start: 20151016, end: 201510
  5. ALAVERT ALLERGY [Suspect]
     Active Substance: LORATADINE
     Indication: PARANASAL SINUS DISCOMFORT

REACTIONS (1)
  - Drug ineffective [Unknown]
